FAERS Safety Report 4714303-4 (Version None)
Quarter: 2005Q3

REPORT INFORMATION
  Report Type: 
  Country: None (occurrence: None)
  Receive Date: 20050714
  Receipt Date: 20050323
  Transmission Date: 20060218
  Serious: Yes (Hospitalization)
  Sender: FDA-Public Use
  Company Number: US-MERCK-0503USA04155

PATIENT
  Age: 66 Year
  Sex: Male
  Weight: 105 kg

DRUGS (9)
  1. VIOXX [Suspect]
     Indication: MYALGIA
     Route: 048
     Dates: start: 20040209, end: 20041001
  2. FUROSEMIDE [Concomitant]
     Route: 065
  3. LOTREL [Concomitant]
     Route: 065
  4. DIFLUCAN [Concomitant]
     Route: 065
  5. GLUCOPHAGE XR [Concomitant]
     Route: 065
  6. ACTOS [Concomitant]
     Route: 065
  7. LANTUS [Concomitant]
     Route: 065
  8. MEVACOR [Concomitant]
     Route: 065
  9. MECLIZINE [Concomitant]
     Route: 065

REACTIONS (1)
  - CEREBROVASCULAR ACCIDENT [None]
